FAERS Safety Report 15672967 (Version 1)
Quarter: 2018Q4

REPORT INFORMATION
  Report Type: Report from Study
  Country: US (occurrence: US)
  Receive Date: 20181129
  Receipt Date: 20181129
  Transmission Date: 20190205
  Serious: Yes (Other)
  Sender: FDA-Public Use
  Company Number: US-TESARO, INC-US-2018TSO02464

PATIENT
  Sex: Female

DRUGS (5)
  1. ZEJULA [Suspect]
     Active Substance: NIRAPARIB
     Dosage: 100 MG, UNK
     Route: 048
  2. ZEJULA [Suspect]
     Active Substance: NIRAPARIB
     Dosage: 100 MG, QD
     Route: 048
     Dates: start: 20180610
  3. ZEJULA [Suspect]
     Active Substance: NIRAPARIB
     Dosage: 200 MG, QD
     Route: 048
  4. ZEJULA [Suspect]
     Active Substance: NIRAPARIB
     Indication: OVARIAN CANCER
     Dosage: 300 MG, QD
     Route: 048
     Dates: start: 20180503, end: 20180517
  5. ZEJULA [Suspect]
     Active Substance: NIRAPARIB
     Dosage: UNK

REACTIONS (13)
  - Hepatic enzyme increased [Recovering/Resolving]
  - Laboratory test abnormal [Not Recovered/Not Resolved]
  - Asthma [Recovered/Resolved]
  - Gamma-glutamyltransferase increased [Unknown]
  - Constipation [Recovering/Resolving]
  - Blood pressure increased [Unknown]
  - Blood iron increased [Not Recovered/Not Resolved]
  - Bowel movement irregularity [Not Recovered/Not Resolved]
  - Alanine aminotransferase increased [Unknown]
  - Parosmia [Not Recovered/Not Resolved]
  - Aspartate aminotransferase increased [Unknown]
  - Initial insomnia [Unknown]
  - Cough [Unknown]
